FAERS Safety Report 15941311 (Version 4)
Quarter: 2020Q1

REPORT INFORMATION
  Report Type: Spontaneous
  Country: US (occurrence: US)
  Receive Date: 20190208
  Receipt Date: 20200326
  Transmission Date: 20200409
  Serious: Yes (Other)
  Sender: FDA-Public Use
  Company Number: US-BIOMARINAP-US-2019-121849

PATIENT
  Sex: Female
  Weight: 64.67 kg

DRUGS (2)
  1. KUVAN [Suspect]
     Active Substance: SAPROPTERIN DIHYDROCHLORIDE
     Dosage: 1300 MILLIGRAM, QD
     Route: 048
  2. KUVAN [Suspect]
     Active Substance: SAPROPTERIN DIHYDROCHLORIDE
     Indication: PHENYLKETONURIA
     Dosage: 1500 MILLIGRAM, QD
     Route: 048

REACTIONS (4)
  - Behaviour disorder [Unknown]
  - Aggression [Unknown]
  - Depression [Unknown]
  - Anxiety [Unknown]
